FAERS Safety Report 13306361 (Version 1)
Quarter: 2017Q1

REPORT INFORMATION
  Report Type: Spontaneous
  Country: US (occurrence: US)
  Receive Date: 20170308
  Receipt Date: 20170308
  Transmission Date: 20170428
  Serious: Yes (Other)
  Sender: FDA-Public Use
  Company Number: US-009507513-1703USA001049

PATIENT
  Age: 24 Year
  Sex: Female
  Weight: 66.21 kg

DRUGS (3)
  1. REGLAN [Concomitant]
     Active Substance: METOCLOPRAMIDE HYDROCHLORIDE
  2. RANITIDINE. [Concomitant]
     Active Substance: RANITIDINE
  3. NEXPLANON [Suspect]
     Active Substance: ETONOGESTREL
     Indication: CONTRACEPTION
     Dosage: 1 IMPLANT IN THE LEFT ARM, EVERY 3 YEARS
     Route: 059

REACTIONS (10)
  - Muscle spasms [Unknown]
  - Decreased appetite [Unknown]
  - Tobacco user [Unknown]
  - Clostridium difficile infection [Unknown]
  - Unintended pregnancy [Unknown]
  - Abdominal discomfort [Not Recovered/Not Resolved]
  - Device deployment issue [Unknown]
  - Abdominal pain [Unknown]
  - Pregnancy with implant contraceptive [Unknown]
  - Asthenia [Unknown]
